FAERS Safety Report 9101894 (Version 1)
Quarter: 2013Q1

REPORT INFORMATION
  Report Type: Spontaneous
  Country: US (occurrence: US)
  Receive Date: 20130218
  Receipt Date: 20130218
  Transmission Date: 20140127
  Serious: Yes (Other)
  Sender: FDA-Public Use
  Company Number: PHHY2013US014024

PATIENT
  Age: 41 Year
  Sex: Male

DRUGS (3)
  1. ROPINIROLE HYDROCHLORIDE [Suspect]
     Indication: PARKINSON^S DISEASE
     Dosage: 1 MG, BID
     Route: 048
  2. ROPINIROLE HYDROCHLORIDE [Suspect]
     Dosage: 3 MG, BID
     Route: 048
  3. ROPINIROLE HYDROCHLORIDE [Suspect]
     Dosage: 3 MG, TID
     Route: 048

REACTIONS (9)
  - Increased appetite [Recovered/Resolved]
  - Weight increased [Recovered/Resolved]
  - Obsessive-compulsive personality disorder [Recovered/Resolved]
  - Impulsive behaviour [Recovered/Resolved]
  - Libido increased [Recovered/Resolved]
  - Pathological gambling [Recovered/Resolved]
  - Parkinsonism [Recovered/Resolved]
  - Psychiatric symptom [None]
  - Alcohol use [None]
